FAERS Safety Report 7656204-8 (Version None)
Quarter: 2011Q3

REPORT INFORMATION
  Report Type: 
  Country: None (occurrence: None)
  Receive Date: 20110804
  Receipt Date: 20110722
  Transmission Date: 20111222
  Serious: Yes (Hospitalization)
  Sender: FDA-Public Use
  Company Number: IL-SANOFI-AVENTIS-2011SA048182

PATIENT
  Sex: Female
  Weight: 75 kg

DRUGS (8)
  1. DOXAZOSIN MESYLATE [Concomitant]
     Route: 065
  2. VALSARTAN [Concomitant]
     Route: 065
  3. ATENOLOL [Concomitant]
     Route: 065
  4. AMLODIPINE [Concomitant]
     Route: 065
  5. FUROSEMIDE [Concomitant]
     Route: 065
  6. SIMVASTATIN [Concomitant]
     Route: 065
  7. DRONEDARONE HCL [Suspect]
     Indication: ATRIAL FIBRILLATION
     Route: 048
     Dates: start: 20110116, end: 20110119
  8. WARFARIN SODIUM [Concomitant]
     Route: 065

REACTIONS (1)
  - VENTRICULAR TACHYCARDIA [None]
